FAERS Safety Report 9102859 (Version 1)
Quarter: 2013Q1

REPORT INFORMATION
  Report Type: Spontaneous
  Country: JP (occurrence: JP)
  Receive Date: 20130219
  Receipt Date: 20130219
  Transmission Date: 20140127
  Serious: Yes (Hospitalization)
  Sender: FDA-Public Use
  Company Number: JP-PFIZER INC-2013058271

PATIENT
  Age: 63 Year
  Sex: Male

DRUGS (1)
  1. LINEZOLID [Suspect]

REACTIONS (2)
  - Drug resistance [Unknown]
  - Device related infection [Recovered/Resolved]
